FAERS Safety Report 15321818 (Version 1)
Quarter: 2018Q3

REPORT INFORMATION
  Report Type: Spontaneous
  Country: US (occurrence: US)
  Receive Date: 20180827
  Receipt Date: 20180827
  Transmission Date: 20181010
  Serious: Yes (Other)
  Sender: FDA-Public Use
  Company Number: US-TAKEDA-2018MPI010764

PATIENT
  Sex: Female

DRUGS (1)
  1. NINLARO [Suspect]
     Active Substance: IXAZOMIB CITRATE
     Indication: PLASMA CELL MYELOMA
     Dosage: 2.3 MG, Q2WEEKS
     Route: 048
     Dates: start: 20180822

REACTIONS (3)
  - Off label use [Unknown]
  - Cholelithiasis [Unknown]
  - Feeling abnormal [Unknown]
